FAERS Safety Report 5152084-3 (Version None)
Quarter: 2006Q4

REPORT INFORMATION
  Report Type: 
  Country: None (occurrence: None)
  Receive Date: 20061113
  Receipt Date: 20061113
  Transmission Date: 20070319
  Serious: Yes (Other)
  Sender: FDA-Public Use
  Company Number: None

PATIENT
  Age: 56 Year
  Sex: Male
  Weight: 91.6266 kg

DRUGS (5)
  1. TRIGLIDE [Suspect]
     Indication: BLOOD CHOLESTEROL INCREASED
     Dosage: TAKE 1 TABLET DAILY
     Dates: start: 20060801
  2. TRIGLIDE [Suspect]
     Indication: BLOOD TRIGLYCERIDES INCREASED
     Dosage: TAKE 1 TABLET DAILY
     Dates: start: 20060801
  3. OEMPRAZOLE [Concomitant]
  4. NORVASC [Concomitant]
  5. QUINAPRIL [Concomitant]

REACTIONS (4)
  - DYSPHAGIA [None]
  - OESOPHAGEAL DISORDER [None]
  - PHARMACEUTICAL PRODUCT COMPLAINT [None]
  - THROAT IRRITATION [None]
